FAERS Safety Report 14364665 (Version 1)
Quarter: 2018Q1

REPORT INFORMATION
  Report Type: Spontaneous
  Country: US (occurrence: US)
  Receive Date: 20180106
  Receipt Date: 20180106
  Transmission Date: 20180509
  Serious: No
  Sender: FDA-Public Use
  Company Number: None

PATIENT
  Age: 60 Year
  Sex: Male
  Weight: 78.75 kg

DRUGS (1)
  1. SIGNATURE CARE ACID CONTROLLER MAXIMUM STRENGTH [Suspect]
     Active Substance: FAMOTIDINE
     Indication: GASTROOESOPHAGEAL REFLUX DISEASE
     Dosage: ?          QUANTITY:200 TABLET(S);?
     Route: 048
     Dates: start: 20170102, end: 20180102

REACTIONS (3)
  - Drug ineffective [None]
  - Wrong strength [None]
  - Drug effect decreased [None]

NARRATIVE: CASE EVENT DATE: 20180102
